FAERS Safety Report 7718396-1 (Version None)
Quarter: 2011Q3

REPORT INFORMATION
  Report Type: 
  Country: None (occurrence: None)
  Receive Date: 20110830
  Receipt Date: 20110822
  Transmission Date: 20111222
  Serious: Yes (Other)
  Sender: FDA-Public Use
  Company Number: PHHY2011NO75328

PATIENT
  Age: 38 Year
  Sex: Female

DRUGS (1)
  1. RITALIN [Suspect]

REACTIONS (9)
  - DEPRESSION [None]
  - ANXIETY [None]
  - MYALGIA [None]
  - HEADACHE [None]
  - HYPERTENSION [None]
  - FATIGUE [None]
  - NAUSEA [None]
  - HEART RATE INCREASED [None]
  - DIZZINESS [None]
